FAERS Safety Report 21187246 (Version 3)
Quarter: 2024Q1

REPORT INFORMATION
  Report Type: Spontaneous
  Country: US (occurrence: US)
  Receive Date: 20220808
  Receipt Date: 20240222
  Transmission Date: 20240410
  Serious: No
  Sender: FDA-Public Use
  Company Number: US-ELI_LILLY_AND_COMPANY-US202208003081

PATIENT
  Age: 67 Year
  Sex: Female

DRUGS (25)
  1. MOUNJARO [Suspect]
     Active Substance: TIRZEPATIDE
     Indication: Glucose tolerance impaired
     Dosage: 2.5 MG, UNKNOWN
     Route: 065
     Dates: start: 20220626
  2. MOUNJARO [Suspect]
     Active Substance: TIRZEPATIDE
     Indication: Glucose tolerance impaired
     Dosage: 2.5 MG, UNKNOWN
     Route: 065
     Dates: start: 20220626
  3. MOUNJARO [Suspect]
     Active Substance: TIRZEPATIDE
     Indication: Glucose tolerance impaired
     Dosage: 2.5 MG, UNKNOWN
     Route: 065
     Dates: start: 20220626
  4. MOUNJARO [Suspect]
     Active Substance: TIRZEPATIDE
     Indication: Glucose tolerance impaired
     Dosage: 2.5 MG, UNKNOWN
     Route: 065
     Dates: start: 20220626
  5. MOUNJARO [Suspect]
     Active Substance: TIRZEPATIDE
     Indication: Glycosylated haemoglobin increased
  6. MOUNJARO [Suspect]
     Active Substance: TIRZEPATIDE
     Indication: Glycosylated haemoglobin increased
  7. MOUNJARO [Suspect]
     Active Substance: TIRZEPATIDE
     Indication: Glycosylated haemoglobin increased
  8. MOUNJARO [Suspect]
     Active Substance: TIRZEPATIDE
     Indication: Glycosylated haemoglobin increased
  9. MOUNJARO [Suspect]
     Active Substance: TIRZEPATIDE
     Indication: Weight control
  10. MOUNJARO [Suspect]
     Active Substance: TIRZEPATIDE
     Indication: Weight control
  11. MOUNJARO [Suspect]
     Active Substance: TIRZEPATIDE
     Indication: Weight control
  12. MOUNJARO [Suspect]
     Active Substance: TIRZEPATIDE
     Indication: Weight control
  13. MOUNJARO [Interacting]
     Active Substance: TIRZEPATIDE
     Indication: Glucose tolerance impaired
     Dosage: 5 MG, UNKNOWN
     Route: 065
     Dates: start: 20220724, end: 20220724
  14. MOUNJARO [Interacting]
     Active Substance: TIRZEPATIDE
     Indication: Glucose tolerance impaired
     Dosage: 5 MG, UNKNOWN
     Route: 065
     Dates: start: 20220724, end: 20220724
  15. MOUNJARO [Interacting]
     Active Substance: TIRZEPATIDE
     Indication: Glucose tolerance impaired
     Dosage: 5 MG, UNKNOWN
     Route: 065
     Dates: start: 20220724, end: 20220724
  16. MOUNJARO [Interacting]
     Active Substance: TIRZEPATIDE
     Indication: Glucose tolerance impaired
     Dosage: 5 MG, UNKNOWN
     Route: 065
     Dates: start: 20220724, end: 20220724
  17. MOUNJARO [Interacting]
     Active Substance: TIRZEPATIDE
     Indication: Glycosylated haemoglobin increased
  18. MOUNJARO [Interacting]
     Active Substance: TIRZEPATIDE
     Indication: Glycosylated haemoglobin increased
  19. MOUNJARO [Interacting]
     Active Substance: TIRZEPATIDE
     Indication: Glycosylated haemoglobin increased
  20. MOUNJARO [Interacting]
     Active Substance: TIRZEPATIDE
     Indication: Glycosylated haemoglobin increased
  21. MOUNJARO [Interacting]
     Active Substance: TIRZEPATIDE
     Indication: Weight control
  22. MOUNJARO [Interacting]
     Active Substance: TIRZEPATIDE
     Indication: Weight control
  23. MOUNJARO [Interacting]
     Active Substance: TIRZEPATIDE
     Indication: Weight control
  24. MOUNJARO [Interacting]
     Active Substance: TIRZEPATIDE
     Indication: Weight control
  25. XYWAV [Interacting]
     Active Substance: CALCIUM OXYBATE\MAGNESIUM OXYBATE\POTASSIUM OXYBATE\SODIUM OXYBATE
     Indication: Narcolepsy
     Dosage: UNK, UNKNOWN
     Route: 065
     Dates: start: 2016

REACTIONS (7)
  - Insomnia [Recovered/Resolved]
  - Intentional dose omission [Unknown]
  - Somnolence [Recovered/Resolved]
  - Feeling abnormal [Unknown]
  - Off label use [Unknown]
  - Drug interaction [Unknown]
  - Malaise [Unknown]

NARRATIVE: CASE EVENT DATE: 20220626
